FAERS Safety Report 5362420-0 (Version None)
Quarter: 2007Q2

REPORT INFORMATION
  Report Type: 
  Country: None (occurrence: None)
  Receive Date: 20070619
  Receipt Date: 20050928
  Transmission Date: 20071010
  Serious: Yes (Hospitalization)
  Sender: FDA-Public Use
  Company Number: US-ASTRAZENECA-2005UW02712

PATIENT
  Age: 33 Year
  Sex: Male
  Weight: 94.8 kg

DRUGS (2)
  1. SEROQUEL [Suspect]
     Indication: BIPOLAR DISORDER
     Route: 048
     Dates: start: 20050110, end: 20050210
  2. TESSALON [Concomitant]
     Indication: COUGH
     Dosage: 200 MG Q 8 HRS
     Route: 048
     Dates: start: 20050201

REACTIONS (3)
  - ASPIRATION [None]
  - BRONCHOSPASM [None]
  - CONVULSION [None]
